FAERS Safety Report 16681724 (Version 2)
Quarter: 2019Q3

REPORT INFORMATION
  Report Type: Report from Study
  Country: AU (occurrence: AU)
  Receive Date: 20190808
  Receipt Date: 20190902
  Transmission Date: 20191004
  Serious: Yes (Death, Hospitalization)
  Sender: FDA-Public Use
  Company Number: AU-ACTELION-A-CH2019-193797

PATIENT
  Age: 88 Year
  Sex: Female

DRUGS (18)
  1. MOVICOL [Concomitant]
     Active Substance: POLYETHYLENE GLYCOL 3350\POTASSIUM CHLORIDE\SODIUM BICARBONATE\SODIUM CHLORIDE
  2. CALCIUM CARBONATE. [Concomitant]
     Active Substance: CALCIUM CARBONATE
  3. DENOSUMAB [Concomitant]
     Active Substance: DENOSUMAB
  4. FLUOXETINE [Concomitant]
     Active Substance: FLUOXETINE HYDROCHLORIDE
  5. PRAVASTATIN. [Concomitant]
     Active Substance: PRAVASTATIN
  6. TADALAFIL. [Suspect]
     Active Substance: TADALAFIL
     Indication: PULMONARY ARTERIAL HYPERTENSION
     Dosage: 40 MG, QD
     Route: 048
     Dates: start: 20150625
  7. HYDROXYCHLOROQUINE [Concomitant]
     Active Substance: HYDROXYCHLOROQUINE
  8. ASPIRIN. [Concomitant]
     Active Substance: ASPIRIN
  9. ESOMEPRAZOLE. [Concomitant]
     Active Substance: ESOMEPRAZOLE MAGNESIUM
  10. PANADOL [Concomitant]
     Active Substance: ACETAMINOPHEN
  11. FRUSEMIDE [Concomitant]
     Active Substance: FUROSEMIDE
  12. OPSUMIT [Suspect]
     Active Substance: MACITENTAN
     Indication: PULMONARY ARTERIAL HYPERTENSION
     Dosage: 10 MG, QD
     Route: 048
     Dates: start: 20150628
  13. DIGOXIN NOVARTIS [Concomitant]
  14. INFLUENZA VACCINE [Concomitant]
     Active Substance: INFLUENZA VIRUS VACCINE
  15. SALIVA [Concomitant]
  16. COLOXYL WITH SENNA [Concomitant]
     Active Substance: DOCUSATE\SENNOSIDES
  17. INTRAGAM P [Concomitant]
     Active Substance: HUMAN IMMUNOGLOBULIN G
  18. ANASTROZOLE. [Concomitant]
     Active Substance: ANASTROZOLE

REACTIONS (10)
  - Decreased appetite [Unknown]
  - Nausea [Unknown]
  - Dry mouth [Unknown]
  - Productive cough [Unknown]
  - Oesophageal motility disorder [Unknown]
  - Death [Fatal]
  - Asthenia [Unknown]
  - Fatigue [Unknown]
  - Weight decreased [Unknown]
  - Dysgeusia [Unknown]

NARRATIVE: CASE EVENT DATE: 20190719
